FAERS Safety Report 5736601-8 (Version None)
Quarter: 2008Q2

REPORT INFORMATION
  Report Type: 
  Country: None (occurrence: None)
  Receive Date: 20080513
  Receipt Date: 20080502
  Transmission Date: 20081010
  Serious: Yes (Other)
  Sender: FDA-Public Use
  Company Number: US-JNJFOC-20061006319

PATIENT
  Sex: Male

DRUGS (1)
  1. RISPERDAL [Suspect]
     Indication: DRUG USE FOR UNKNOWN INDICATION

REACTIONS (9)
  - BLOOD URINE PRESENT [None]
  - CHOLELITHIASIS [None]
  - COLONIC POLYP [None]
  - DIABETES MELLITUS [None]
  - EMPHYSEMA [None]
  - ERECTILE DYSFUNCTION [None]
  - FAECALOMA [None]
  - GASTROINTESTINAL HAEMORRHAGE [None]
  - TREATMENT NONCOMPLIANCE [None]
